FAERS Safety Report 9848439 (Version 1)
Quarter: 2014Q1

REPORT INFORMATION
  Report Type: Spontaneous
  Country: US (occurrence: US)
  Receive Date: 20140128
  Receipt Date: 20140128
  Transmission Date: 20141002
  Serious: Yes (Hospitalization, Other)
  Sender: FDA-Public Use
  Company Number: US-AMGEN-USASP2014005160

PATIENT
  Age: 69 Year
  Sex: Female

DRUGS (1)
  1. ENBREL [Suspect]
     Indication: PSORIASIS
     Dosage: 50 MG, QWK
     Route: 065
     Dates: start: 20090808, end: 20131230

REACTIONS (8)
  - Shoulder operation [Recovered/Resolved]
  - Rotator cuff repair [Recovered/Resolved]
  - Cholelithiasis [Recovered/Resolved]
  - Cholecystitis infective [Recovered/Resolved]
  - Joint injury [Recovered/Resolved]
  - Tendon operation [Recovered/Resolved]
  - Osteoarthritis [Not Recovered/Not Resolved]
  - Procedural pain [Recovered/Resolved]
